FAERS Safety Report 6570775-4 (Version None)
Quarter: 2010Q1

REPORT INFORMATION
  Report Type: 
  Country: None (occurrence: None)
  Receive Date: 20100204
  Receipt Date: 20100127
  Transmission Date: 20100710
  Serious: Yes (Disabling, Other)
  Sender: FDA-Public Use
  Company Number: FR-BAXTER-2009BH017463

PATIENT
  Age: 54 Year
  Sex: Female
  Weight: 54 kg

DRUGS (1)
  1. ENDOXAN BAXTER [Suspect]
     Indication: BREAST CANCER
     Route: 065
     Dates: start: 20090201, end: 20090601

REACTIONS (4)
  - BLADDER PAIN [None]
  - DYSURIA [None]
  - INSOMNIA [None]
  - POLLAKIURIA [None]
